FAERS Safety Report 8622738-2 (Version None)
Quarter: 2012Q3

REPORT INFORMATION
  Report Type: 
  Country: None (occurrence: None)
  Receive Date: 20120827
  Receipt Date: 20120823
  Transmission Date: 20120928
  Serious: Yes (Other)
  Sender: FDA-Public Use
  Company Number: US-JNJFOC-20120809077

PATIENT
  Sex: Female

DRUGS (1)
  1. ORTHO EVRA [Suspect]
     Indication: ENDOMETRIOSIS
     Route: 062
     Dates: start: 20040101

REACTIONS (3)
  - OFF LABEL USE [None]
  - PRODUCT QUALITY ISSUE [None]
  - ENDOMETRIOSIS [None]
